FAERS Safety Report 9852392 (Version 1)
Quarter: 2014Q1

REPORT INFORMATION
  Report Type: Spontaneous
  Country: US (occurrence: None)
  Receive Date: 20140128
  Receipt Date: 20140128
  Transmission Date: 20141002
  Serious: Yes (Other)
  Sender: FDA-Public Use
  Company Number: None

PATIENT
  Age: 57 Year
  Sex: 0
  Weight: 86.18 kg

DRUGS (1)
  1. FLUTICASONE PROPRIONATE NASAL S [Suspect]
     Indication: SINUS CONGESTION
     Dosage: 2 SPRAYS IN EACH NOSTRIL DAILY ONCE DAILY INHALATION
     Dates: start: 20140101, end: 20140127

REACTIONS (3)
  - Asthenia [None]
  - Drug ineffective [None]
  - Product substitution issue [None]
